FAERS Safety Report 9551455 (Version 1)
Quarter: 2013Q3

REPORT INFORMATION
  Report Type: Spontaneous
  Country: US (occurrence: None)
  Receive Date: 20130923
  Receipt Date: 20130923
  Transmission Date: 20140515
  Serious: No
  Sender: FDA-Public Use
  Company Number: None

PATIENT
  Age: 31 Year
  Sex: Male
  Weight: 77.7 kg

DRUGS (1)
  1. SULFAMETHOXAZOLE /TRIMETHOPRIM [Suspect]
     Indication: INFECTION
     Route: 048
     Dates: start: 20110420, end: 20110420

REACTIONS (2)
  - Urticaria [None]
  - Pruritus [None]
